FAERS Safety Report 19820833 (Version 1)
Quarter: 2021Q3

REPORT INFORMATION
  Report Type: Spontaneous
  Country: US (occurrence: US)
  Receive Date: 20210910
  Receipt Date: 20210910
  Transmission Date: 20211014
  Serious: No
  Sender: FDA-Public Use
  Company Number: None

PATIENT
  Age: 72 Year
  Sex: Male

DRUGS (1)
  1. AFINITOR [Suspect]
     Active Substance: EVEROLIMUS
     Route: 048
     Dates: start: 202101

REACTIONS (10)
  - Cough [None]
  - Abdominal pain upper [None]
  - Headache [None]
  - Diarrhoea [None]
  - Epistaxis [None]
  - Dyspnoea [None]
  - Peripheral swelling [None]
  - Blood pressure decreased [None]
  - Pyrexia [None]
  - Asthenia [None]

NARRATIVE: CASE EVENT DATE: 20210810
